APPROVED DRUG PRODUCT: CINACALCET HYDROCHLORIDE
Active Ingredient: CINACALCET HYDROCHLORIDE
Strength: EQ 90MG BASE
Dosage Form/Route: TABLET;ORAL
Application: A213325 | Product #003 | TE Code: AB
Applicant: CHARTWELL RX SCIENCES LLC
Approved: May 18, 2020 | RLD: No | RS: No | Type: RX